FAERS Safety Report 7583225-6 (Version None)
Quarter: 2011Q2

REPORT INFORMATION
  Report Type: 
  Country: None (occurrence: None)
  Receive Date: 20110627
  Receipt Date: 20110627
  Transmission Date: 20111010
  Serious: Yes (Other)
  Sender: FDA-Public Use
  Company Number: None

PATIENT
  Age: 76 Year
  Sex: Male
  Weight: 91 kg

DRUGS (15)
  1. FUROSEMIDE [Concomitant]
  2. ASPIRIN [Concomitant]
  3. CYANOCOBALAMIN [Concomitant]
  4. NIACIN [Suspect]
     Indication: BLOOD CHOLESTEROL INCREASED
     Dosage: 500 MG BID PO
     Route: 048
     Dates: start: 20080701, end: 20110601
  5. GABAPENTIN [Concomitant]
  6. OMEPRAZOLE [Concomitant]
  7. TESTOSTERONE CYPIONATE [Concomitant]
  8. TERAZOSIN HCL [Concomitant]
  9. AMLODIPINE [Concomitant]
  10. LISINOPRIL [Concomitant]
  11. SAW PALMETTO [Concomitant]
  12. ROCALTROL [Concomitant]
  13. MIRAPEX [Concomitant]
  14. LOVAZA [Concomitant]
  15. CALCIUM CITRATE + VITAMIN D3 [Concomitant]

REACTIONS (1)
  - GOUT [None]
